FAERS Safety Report 6604376-6 (Version None)
Quarter: 2010Q1

REPORT INFORMATION
  Report Type: 
  Country: None (occurrence: None)
  Receive Date: 20100226
  Receipt Date: 20090909
  Transmission Date: 20100710
  Serious: No
  Sender: FDA-Public Use
  Company Number: A0806552A

PATIENT
  Age: 43 Year
  Sex: Female

DRUGS (3)
  1. LAMICTAL CD [Suspect]
     Indication: MIGRAINE PROPHYLAXIS
     Route: 048
     Dates: start: 20090904
  2. ATENOLOL [Concomitant]
  3. NORVASC [Concomitant]

REACTIONS (1)
  - MIGRAINE [None]
